FAERS Safety Report 12637987 (Version 1)
Quarter: 2016Q3

REPORT INFORMATION
  Report Type: Spontaneous
  Country: US (occurrence: US)
  Receive Date: 20160809
  Receipt Date: 20160809
  Transmission Date: 20161109
  Serious: No
  Sender: FDA-Public Use
  Company Number: US-SA-2016SA135869

PATIENT
  Age: 63 Year
  Sex: Female

DRUGS (2)
  1. ALIROCUMAB PREFILLED PEN [Concomitant]
     Active Substance: ALIROCUMAB
     Dates: end: 2016
  2. PRALUENT [Suspect]
     Active Substance: ALIROCUMAB
     Route: 065
     Dates: end: 2016

REACTIONS (6)
  - Hypoaesthesia [Unknown]
  - Neuropathy peripheral [Unknown]
  - Back pain [Unknown]
  - Migraine [Unknown]
  - Malaise [Unknown]
  - Pain in extremity [Unknown]
